FAERS Safety Report 7753919-8 (Version None)
Quarter: 2011Q3

REPORT INFORMATION
  Report Type: 
  Country: None (occurrence: None)
  Receive Date: 20110825
  Receipt Date: 20110725
  Transmission Date: 20111222
  Serious: No
  Sender: FDA-Public Use
  Company Number: 332772

PATIENT
  Age: 67 Year
  Sex: Male

DRUGS (3)
  1. ACTOS [Concomitant]
  2. ATENOLOL [Concomitant]
  3. VICTOZA [Suspect]
     Indication: TYPE 2 DIABETES MELLITUS
     Dosage: 1.8 MG, QD, SUBCUTANEOUS
     Route: 058
     Dates: start: 20110201

REACTIONS (2)
  - BLOOD GLUCOSE DECREASED [None]
  - HEART RATE INCREASED [None]
